APPROVED DRUG PRODUCT: AMOXICILLIN
Active Ingredient: AMOXICILLIN
Strength: 200MG
Dosage Form/Route: TABLET, CHEWABLE;ORAL
Application: A065060 | Product #001
Applicant: SUN PHARMACEUTICAL INDUSTRIES LTD
Approved: Nov 29, 2000 | RLD: No | RS: No | Type: DISCN